FAERS Safety Report 8034094-1 (Version None)
Quarter: 2011Q4

REPORT INFORMATION
  Report Type: 
  Country: None (occurrence: None)
  Receive Date: 20111202
  Receipt Date: 20100609
  Transmission Date: 20120403
  Serious: Yes (Hospitalization)
  Sender: FDA-Public Use
  Company Number: 2010SP032263

PATIENT
  Age: 24 Year
  Sex: Female
  Weight: 68.0396 kg

DRUGS (2)
  1. NUVARING [Suspect]
     Indication: CONTRACEPTION
     Dosage: 1 DF;QM
     Dates: start: 20060228, end: 20070731
  2. NUVARING [Suspect]
     Indication: MOOD SWINGS
     Dosage: 1 DF;QM
     Dates: start: 20060228, end: 20070731

REACTIONS (2)
  - PULMONARY EMBOLISM [None]
  - THROMBOSIS [None]
